FAERS Safety Report 8327968-5 (Version None)
Quarter: 2012Q2

REPORT INFORMATION
  Report Type: 
  Country: None (occurrence: None)
  Receive Date: 20120502
  Receipt Date: 20120423
  Transmission Date: 20120825
  Serious: Yes (Hospitalization)
  Sender: FDA-Public Use
  Company Number: US-BAYER-2011-112133

PATIENT
  Age: 30 Year
  Sex: Female
  Weight: 102.4 kg

DRUGS (4)
  1. DROSPIRENONE AND ETHINYL ESTRADIOL [Suspect]
     Indication: ACNE
     Dosage: UNK
     Dates: start: 20040101, end: 20110101
  2. YASMIN [Suspect]
     Dosage: UNK
     Dates: start: 20040101, end: 20110101
  3. VITAMIN AND MINERAL PRENATAL SUPPLEMENT W/ FOLIC ACID CAP [Concomitant]
     Dosage: 1 TAB DAILY
     Route: 048
  4. CEFOTININ [AS WRITTEN] (INTERPRETED AS CEFDINIR) [Concomitant]
     Dosage: 300 MG, UNK
     Route: 048

REACTIONS (2)
  - CHOLECYSTITIS [None]
  - PAIN [None]
